FAERS Safety Report 16048513 (Version 7)
Quarter: 2020Q1

REPORT INFORMATION
  Report Type: Spontaneous
  Country: US (occurrence: US)
  Receive Date: 20190307
  Receipt Date: 20200227
  Transmission Date: 20200409
  Serious: Yes (Other)
  Sender: FDA-Public Use
  Company Number: US-ASTRAZENECA-2018SF64770

PATIENT
  Age: 51 Year
  Sex: Female
  Weight: 81.6 kg

DRUGS (40)
  1. NEXIUM 24HR [Suspect]
     Active Substance: ESOMEPRAZOLE MAGNESIUM
     Route: 048
  2. PRILOSEC OTC [Suspect]
     Active Substance: OMEPRAZOLE MAGNESIUM
     Route: 048
  3. PEPCID [Concomitant]
     Active Substance: FAMOTIDINE
  4. SIMVASTATIN. [Concomitant]
     Active Substance: SIMVASTATIN
     Dosage: 40.0MG UNKNOWN
     Dates: start: 20091231
  5. CYMBALTA [Concomitant]
     Active Substance: DULOXETINE HYDROCHLORIDE
     Dosage: 60.0MG UNKNOWN
     Dates: start: 20100104
  6. OXYCONTIN [Concomitant]
     Active Substance: OXYCODONE HYDROCHLORIDE
     Dosage: 20.0MG UNKNOWN
     Dates: start: 20100305
  7. NEXIUM [Suspect]
     Active Substance: ESOMEPRAZOLE MAGNESIUM
     Indication: GASTROOESOPHAGEAL REFLUX DISEASE
     Route: 048
     Dates: start: 20010220, end: 20140101
  8. PRILOSEC [Suspect]
     Active Substance: OMEPRAZOLE MAGNESIUM
     Indication: GASTROOESOPHAGEAL REFLUX DISEASE
     Route: 048
     Dates: start: 2010, end: 2018
  9. PREVACID [Suspect]
     Active Substance: LANSOPRAZOLE
     Indication: GASTROOESOPHAGEAL REFLUX DISEASE
     Route: 065
     Dates: start: 2010, end: 2018
  10. CLONIDINE. [Concomitant]
     Active Substance: CLONIDINE
     Dosage: 0.1MG UNKNOWN
     Dates: start: 20100128
  11. NEXIUM [Suspect]
     Active Substance: ESOMEPRAZOLE MAGNESIUM
     Indication: GASTROOESOPHAGEAL REFLUX DISEASE
     Route: 048
     Dates: start: 2010, end: 2018
  12. NEXIUM [Suspect]
     Active Substance: ESOMEPRAZOLE MAGNESIUM
     Indication: GASTROOESOPHAGEAL REFLUX DISEASE
     Dosage: GENERIC
     Route: 065
     Dates: start: 20171023
  13. FUROSEMIDE. [Concomitant]
     Active Substance: FUROSEMIDE
     Dosage: 20.0MG UNKNOWN
     Dates: start: 20100107
  14. CHLORDIAZEPOXIDE. [Concomitant]
     Active Substance: CHLORDIAZEPOXIDE
     Dosage: 25.0MG UNKNOWN
     Dates: start: 20100128
  15. ADVAIR DISKUS [Concomitant]
     Active Substance: FLUTICASONE PROPIONATE\SALMETEROL XINAFOATE
  16. GABAPENTIN. [Concomitant]
     Active Substance: GABAPENTIN
  17. PROMETHAZINE [Concomitant]
     Active Substance: PROMETHAZINE HYDROCHLORIDE
  18. PREVACID 24 HR [Suspect]
     Active Substance: LANSOPRAZOLE
     Indication: GASTROOESOPHAGEAL REFLUX DISEASE
     Route: 065
     Dates: start: 2010, end: 2018
  19. CLONIDINE. [Concomitant]
     Active Substance: CLONIDINE
     Dosage: 0.1MG UNKNOWN
     Dates: start: 20100128
  20. DIOVAN [Concomitant]
     Active Substance: VALSARTAN
     Dosage: 160.0MG UNKNOWN
     Dates: start: 20100401
  21. NEXIUM [Suspect]
     Active Substance: ESOMEPRAZOLE MAGNESIUM
     Indication: GASTROOESOPHAGEAL REFLUX DISEASE
     Route: 048
     Dates: start: 20100128
  22. CIPROFLOXACIN HCL [Concomitant]
     Active Substance: CIPROFLOXACIN HYDROCHLORIDE
     Dosage: 250.0MG UNKNOWN
     Dates: start: 20100211
  23. METHOCARBAMOL. [Concomitant]
     Active Substance: METHOCARBAMOL
     Dosage: 500.0MG UNKNOWN
     Dates: start: 20100305
  24. ASPIRIN. [Concomitant]
     Active Substance: ASPIRIN
  25. COMBIVENT [Concomitant]
     Active Substance: ALBUTEROL SULFATE\IPRATROPIUM BROMIDE
  26. LOVAZA [Concomitant]
     Active Substance: OMEGA-3-ACID ETHYL ESTERS
  27. ZANTAC [Concomitant]
     Active Substance: RANITIDINE HYDROCHLORIDE
  28. OXYCODONE [Concomitant]
     Active Substance: OXYCODONE
     Dosage: 15.0MG UNKNOWN
     Dates: start: 20100208
  29. POLYETHYLENE GLYCOL [Concomitant]
     Active Substance: POLYETHYLENE GLYCOLS
     Dates: start: 20100223
  30. TRAZODONE [Concomitant]
     Active Substance: TRAZODONE HYDROCHLORIDE
     Dosage: 50.0MG UNKNOWN
     Dates: start: 20100303
  31. SIMVASTATIN. [Concomitant]
     Active Substance: SIMVASTATIN
     Dosage: 20.0MG UNKNOWN
     Dates: start: 20100223
  32. AMITRIPTYLINE [Concomitant]
     Active Substance: AMITRIPTYLINE
  33. NEXIUM [Suspect]
     Active Substance: ESOMEPRAZOLE MAGNESIUM
     Indication: GASTROOESOPHAGEAL REFLUX DISEASE
     Route: 048
     Dates: start: 20090216
  34. CARISOPRODOL. [Concomitant]
     Active Substance: CARISOPRODOL
     Dosage: 350.0MG UNKNOWN
     Dates: start: 20100208
  35. LACTULOSE. [Concomitant]
     Active Substance: LACTULOSE
     Dosage: 10.0MG UNKNOWN
     Dates: start: 20100223
  36. LANTUS [Concomitant]
     Active Substance: INSULIN GLARGINE
  37. PROTONIX [Suspect]
     Active Substance: PANTOPRAZOLE SODIUM
     Indication: GASTROOESOPHAGEAL REFLUX DISEASE
     Route: 065
     Dates: start: 2010, end: 2018
  38. ACTOS [Concomitant]
     Active Substance: PIOGLITAZONE HYDROCHLORIDE
     Dosage: 15.0MG UNKNOWN
     Dates: start: 20100123
  39. CHANTIX [Concomitant]
     Active Substance: VARENICLINE TARTRATE
     Dosage: 0.5MG UNKNOWN
     Dates: start: 20100223
  40. METOPROLOL SUCCINATE. [Concomitant]
     Active Substance: METOPROLOL SUCCINATE

REACTIONS (4)
  - Renal injury [Unknown]
  - Acute kidney injury [Not Recovered/Not Resolved]
  - Chronic kidney disease [Unknown]
  - Gastrooesophageal reflux disease [Not Recovered/Not Resolved]

NARRATIVE: CASE EVENT DATE: 2010
